FAERS Safety Report 9625217 (Version 1)
Quarter: 2013Q4

REPORT INFORMATION
  Report Type: Spontaneous
  Country: US (occurrence: None)
  Receive Date: 20131015
  Receipt Date: 20131015
  Transmission Date: 20140711
  Serious: No
  Sender: FDA-Public Use
  Company Number: None

PATIENT
  Age: 63 Year
  Sex: Female

DRUGS (1)
  1. OCTREOTIDE 1000MCG/ML [Suspect]
     Indication: HYPERGLYCAEMIA
     Route: 058
     Dates: start: 20130905, end: 20131014

REACTIONS (3)
  - Migraine [None]
  - Abdominal pain upper [None]
  - Nausea [None]
